FAERS Safety Report 16440025 (Version 2)
Quarter: 2022Q1

REPORT INFORMATION
  Report Type: Report from Study
  Country: JP (occurrence: JP)
  Receive Date: 20190617
  Receipt Date: 20220124
  Transmission Date: 20220423
  Serious: Yes (Other)
  Sender: FDA-Public Use
  Company Number: JP-BIOCODEX2-201900491

PATIENT
  Age: 4 Year
  Sex: Female
  Weight: 20.2 kg

DRUGS (14)
  1. DIACOMIT [Suspect]
     Active Substance: STIRIPENTOL
     Indication: Severe myoclonic epilepsy of infancy
     Dosage: 250 MG EVERY 1 DAY
     Route: 048
     Dates: start: 20170317, end: 20170330
  2. DIACOMIT [Suspect]
     Active Substance: STIRIPENTOL
     Dosage: 500 MG EVERY 1 DAY(S)
     Route: 048
     Dates: start: 20170331, end: 20170414
  3. DIACOMIT [Suspect]
     Active Substance: STIRIPENTOL
     Dosage: 750 MG EVERY 1 DAY(S)
     Route: 048
     Dates: start: 20170415, end: 20170625
  4. DIACOMIT [Suspect]
     Active Substance: STIRIPENTOL
     Dosage: 1000 MG EVERY 1 DAY(S)
     Route: 048
     Dates: start: 20170626, end: 20171029
  5. DIACOMIT [Suspect]
     Active Substance: STIRIPENTOL
     Dosage: 1000 MG EVERY 1 DAY(S)
     Route: 048
     Dates: start: 20171030, end: 20171106
  6. DIACOMIT [Suspect]
     Active Substance: STIRIPENTOL
     Dosage: 1000 MG EVERY 1 DAY(S)
     Route: 048
     Dates: start: 20171107
  7. CLOBAZAM [Suspect]
     Active Substance: CLOBAZAM
     Indication: Severe myoclonic epilepsy of infancy
     Dosage: 18 MG
     Route: 048
     Dates: start: 20160119
  8. VALPROATE SODIUM [Suspect]
     Active Substance: VALPROATE SODIUM
     Indication: Severe myoclonic epilepsy of infancy
     Dosage: 200 MG
     Route: 048
  9. POTASSIUM BROMIDE [Suspect]
     Active Substance: POTASSIUM BROMIDE
     Indication: Severe myoclonic epilepsy of infancy
     Dosage: 0.5 G, QD
     Route: 048
     Dates: start: 20170808, end: 20180131
  10. POTASSIUM BROMIDE [Suspect]
     Active Substance: POTASSIUM BROMIDE
     Dosage: 0.25 G, QD
     Route: 048
     Dates: start: 20180201
  11. ACETAMINOPHEN, ASPIRIN AND CAFFEINE [Concomitant]
     Active Substance: ACETAMINOPHEN\ASPIRIN\CAFFEINE
     Indication: Product used for unknown indication
     Dosage: AS NEEDED
     Route: 048
     Dates: start: 20170211
  12. HEPARINOID [Concomitant]
     Indication: Product used for unknown indication
     Route: 065
  13. DIPHENHYDRAMINE [Concomitant]
     Active Substance: DIPHENHYDRAMINE
     Indication: Product used for unknown indication
     Route: 065
  14. CALCIUM CHLORIDE\POTASSIUM CHLORIDE\SODIUM ACETATE [Concomitant]
     Active Substance: CALCIUM CHLORIDE\POTASSIUM CHLORIDE\SODIUM ACETATE
     Indication: Product used for unknown indication
     Route: 065

REACTIONS (2)
  - Somnolence [Not Recovered/Not Resolved]
  - Rash [Recovered/Resolved]

NARRATIVE: CASE EVENT DATE: 20170317
